FAERS Safety Report 4802130-9 (Version None)
Quarter: 2005Q4

REPORT INFORMATION
  Report Type: 
  Country: None (occurrence: None)
  Receive Date: 20051012
  Receipt Date: 20050926
  Transmission Date: 20060501
  Serious: Yes (Disabling)
  Sender: FDA-Public Use
  Company Number: 2005S1006823

PATIENT
  Age: 44 Year
  Sex: Male
  Weight: 54.4316 kg

DRUGS (8)
  1. FENTANYL [Suspect]
     Indication: MUSCLE SPASMS
     Dosage: SEE IMAGE
     Route: 062
  2. FENTANYL [Suspect]
     Indication: NECK PAIN
     Dosage: SEE IMAGE
     Route: 062
  3. FENTANYL [Suspect]
     Indication: MUSCLE SPASMS
     Dosage: SEE IMAGE
     Route: 062
     Dates: start: 20050601
  4. FENTANYL [Suspect]
     Indication: NECK PAIN
     Dosage: SEE IMAGE
     Route: 062
     Dates: start: 20050601
  5. METHYLPREDNISOLONE [Concomitant]
  6. CLONAZEPAM [Concomitant]
  7. PARACETAMOL/HYDROCODONE [Concomitant]
  8. BITARTRATE [Concomitant]

REACTIONS (5)
  - APPLICATION SITE ERYTHEMA [None]
  - APPLICATION SITE IRRITATION [None]
  - DRUG WITHDRAWAL SYNDROME [None]
  - INADEQUATE ANALGESIA [None]
  - PHARMACEUTICAL PRODUCT COMPLAINT [None]
